FAERS Safety Report 9319477 (Version 10)
Quarter: 2014Q3

REPORT INFORMATION
  Report Type: Spontaneous
  Country: US (occurrence: US)
  Receive Date: 20130530
  Receipt Date: 20140721
  Transmission Date: 20150326
  Serious: Yes (Hospitalization)
  Sender: FDA-Public Use
  Company Number: US-GLAXOSMITHKLINE-A0989068A

PATIENT
  Age: 71 Year
  Sex: Female

DRUGS (2)
  1. FLOLAN [Suspect]
     Active Substance: EPOPROSTENOL SODIUM
     Indication: COR PULMONALE CHRONIC
     Dosage: 18NGKM CONTINUOUS
     Route: 042
     Dates: start: 20030702
  2. ASPIRIN. [Concomitant]
     Active Substance: ASPIRIN
     Indication: PRODUCT USED FOR UNKNOWN INDICATION
     Route: 065

REACTIONS (8)
  - Flushing [Unknown]
  - Femur fracture [Unknown]
  - Decubitus ulcer [Unknown]
  - Diarrhoea [Unknown]
  - Investigation [Unknown]
  - Device occlusion [Unknown]
  - Paracentesis [Unknown]
  - Vomiting [Unknown]

NARRATIVE: CASE EVENT DATE: 2013
